FAERS Safety Report 18964398 (Version 2)
Quarter: 2022Q1

REPORT INFORMATION
  Report Type: Spontaneous
  Country: US (occurrence: US)
  Receive Date: 20210303
  Receipt Date: 20220224
  Transmission Date: 20220424
  Serious: No
  Sender: FDA-Public Use
  Company Number: US-AMNEAL PHARMACEUTICALS-2020-AMRX-03109

PATIENT
  Sex: Male

DRUGS (4)
  1. RYTARY [Suspect]
     Active Substance: CARBIDOPA\LEVODOPA
     Indication: Parkinson^s disease
     Dosage: UNK (OLDER DOSE)
     Route: 048
  2. RYTARY [Suspect]
     Active Substance: CARBIDOPA\LEVODOPA
     Dosage: 36.25/145 MG, 4 CAPSULES, TID
     Route: 048
     Dates: end: 20210210
  3. RYTARY [Suspect]
     Active Substance: CARBIDOPA\LEVODOPA
     Dosage: 61.25/245MG, 2 CAPSULES, 4 /DAY (AT 7AM, 12PM, 5PM, AND 10PM)
     Route: 048
     Dates: start: 20210210
  4. RYTARY [Suspect]
     Active Substance: CARBIDOPA\LEVODOPA
     Dosage: 48.75/195MG, 1 CAPSULES, QID (5 HRS APART AT 7AM, 12PM, 5PM, 10PM)
     Route: 048
     Dates: start: 20210317

REACTIONS (7)
  - Drug ineffective [Unknown]
  - Movement disorder [Unknown]
  - General physical health deterioration [Unknown]
  - Tremor [Unknown]
  - Gait disturbance [Unknown]
  - Insomnia [Unknown]
  - Prescribed overdose [Unknown]
